APPROVED DRUG PRODUCT: AMLODIPINE BESYLATE, VALSARTAN AND HYDROCHLOROTHIAZIDE
Active Ingredient: AMLODIPINE BESYLATE; HYDROCHLOROTHIAZIDE; VALSARTAN
Strength: EQ 10MG BASE;25MG;320MG
Dosage Form/Route: TABLET;ORAL
Application: A206180 | Product #005 | TE Code: AB
Applicant: AUROBINDO PHARMA LTD
Approved: Dec 19, 2017 | RLD: No | RS: No | Type: RX